FAERS Safety Report 8261769-1 (Version None)
Quarter: 2012Q2

REPORT INFORMATION
  Report Type: 
  Country: None (occurrence: None)
  Receive Date: 20120402
  Receipt Date: 20120321
  Transmission Date: 20120825
  Serious: Yes (Life-Threatening)
  Sender: FDA-Public Use
  Company Number: 2012MA003956

PATIENT
  Age: 49 Year
  Sex: Female

DRUGS (1)
  1. METFORMIN HYDROCHLORIDE [Suspect]
     Indication: TYPE 2 DIABETES MELLITUS
     Dosage: 500 MG;QD;PO
     Route: 048
     Dates: start: 20120301, end: 20120302

REACTIONS (3)
  - INDIFFERENCE [None]
  - HEART RATE INCREASED [None]
  - DIZZINESS [None]
